FAERS Safety Report 9601004 (Version 1)
Quarter: 2013Q4

REPORT INFORMATION
  Report Type: Spontaneous
  Country: US (occurrence: US)
  Receive Date: 20131004
  Receipt Date: 20131004
  Transmission Date: 20140711
  Serious: No
  Sender: FDA-Public Use
  Company Number: US-AMGEN-USASP2013038158

PATIENT
  Age: 35 Year
  Sex: Female
  Weight: 68.03 kg

DRUGS (10)
  1. ENBREL [Suspect]
     Indication: PRODUCT USED FOR UNKNOWN INDICATION
     Dosage: 50 MG, QWK
     Route: 058
  2. IRON [Concomitant]
     Dosage: UNK
  3. PRENATAL                           /01529801/ [Concomitant]
     Dosage: UNK 1 CAPSULE
  4. BIOTIN [Concomitant]
     Dosage: UNK
  5. PRILOSEC                           /00661201/ [Concomitant]
     Dosage: 20 MG, UNK
  6. FISH OIL [Concomitant]
     Dosage: UNK
  7. VITAMIN D                          /00107901/ [Concomitant]
     Dosage: 1000 UNIT, UNK
  8. IBUPROFEN [Concomitant]
     Dosage: 800 MG, UNK
  9. HYDROXYCHLOROQUINE [Concomitant]
     Dosage: 200 MG, UNK
  10. CHLORTHALIDONE [Concomitant]
     Dosage: 25 MG, UNK

REACTIONS (2)
  - Injection site reaction [Recovered/Resolved]
  - Injection site erythema [Recovered/Resolved]
